FAERS Safety Report 24753207 (Version 1)
Quarter: 2024Q4

REPORT INFORMATION
  Report Type: Spontaneous
  Country: US (occurrence: US)
  Receive Date: 20241219
  Receipt Date: 20241219
  Transmission Date: 20250115
  Serious: No
  Sender: PACIRA
  Company Number: US-ORG100016242-2024000057

PATIENT
  Sex: Male

DRUGS (2)
  1. EXPAREL [Suspect]
     Active Substance: BUPIVACAINE
     Indication: Transversus abdominis plane block
     Dosage: 2 VIALS OF 10 ML FOR BILATERAL TAP BLOCK
     Route: 065
  2. EXPAREL [Suspect]
     Active Substance: BUPIVACAINE
     Indication: Transversus abdominis plane block
     Dosage: 2 VIALS OF 10 ML FOR LOCAL INFILTRATION
     Route: 050

REACTIONS (1)
  - Extra dose administered [Unknown]
